FAERS Safety Report 9115937 (Version 2)
Quarter: 2013Q2

REPORT INFORMATION
  Report Type: Spontaneous
  Country: IT (occurrence: IT)
  Receive Date: 20130225
  Receipt Date: 20130405
  Transmission Date: 20140414
  Serious: Yes (Hospitalization)
  Sender: FDA-Public Use
  Company Number: IT-PFIZER INC-2013064655

PATIENT
  Age: 61 Year
  Sex: Female

DRUGS (4)
  1. ARACYTIN [Suspect]
     Indication: NON-HODGKIN^S LYMPHOMA
     Dosage: 400 MG/M2, 1X/DAY
     Route: 042
     Dates: start: 20120603, end: 20120606
  2. LEVACT [Concomitant]
     Indication: NON-HODGKIN^S LYMPHOMA
     Dosage: 200 MG/M2, UNK
     Route: 042
     Dates: start: 20120601, end: 20120602
  3. ALKERAN [Concomitant]
     Indication: NON-HODGKIN^S LYMPHOMA
     Dosage: 140 MG/M2, UNK
     Route: 042
     Dates: start: 20120607, end: 20120607
  4. ETOPOSIDE-TEVA [Concomitant]
     Indication: NON-HODGKIN^S LYMPHOMA
     Dosage: 200 MG/M2, UNK
     Route: 042
     Dates: start: 20120603, end: 20120606

REACTIONS (4)
  - Generalised oedema [Recovered/Resolved]
  - Septic shock [Recovered/Resolved]
  - Renal impairment [Recovered/Resolved]
  - Blood creatinine increased [Unknown]
